FAERS Safety Report 5109637-8 (Version None)
Quarter: 2006Q3

REPORT INFORMATION
  Report Type: 
  Country: None (occurrence: None)
  Receive Date: 20060918
  Receipt Date: 20060907
  Transmission Date: 20061208
  Serious: Yes (Hospitalization)
  Sender: FDA-Public Use
  Company Number: 14740

PATIENT
  Age: 56 Year
  Sex: Female

DRUGS (3)
  1. FLUOROURACIL [Suspect]
  2. METHOTREXATE [Suspect]
  3. CYCLOPHOSPHAMIDE [Suspect]

REACTIONS (3)
  - ANKLE BRACHIAL INDEX DECREASED [None]
  - PERIPHERAL ISCHAEMIA [None]
  - PULSE ABSENT [None]
